FAERS Safety Report 9791559 (Version 1)
Quarter: 2014Q1

REPORT INFORMATION
  Report Type: Spontaneous
  Country: IT (occurrence: IT)
  Receive Date: 20140101
  Receipt Date: 20140101
  Transmission Date: 20141002
  Serious: Yes (Other)
  Sender: FDA-Public Use
  Company Number: PHHY2013IT151184

PATIENT
  Age: 78 Year
  Sex: Female

DRUGS (2)
  1. DULOXETINE [Suspect]
     Dosage: 30 MG, PER DAY
  2. LORAZEPAM [Suspect]
     Dosage: 3 MG, PER DAY

REACTIONS (3)
  - Hallucination, visual [Recovered/Resolved]
  - Sleep disorder [Recovered/Resolved]
  - Nightmare [Recovered/Resolved]
